FAERS Safety Report 12852240 (Version 3)
Quarter: 2016Q4

REPORT INFORMATION
  Report Type: Report from Study
  Country: FR (occurrence: FR)
  Receive Date: 20161017
  Receipt Date: 20161216
  Transmission Date: 20170207
  Serious: Yes (Death)
  Sender: FDA-Public Use
  Company Number: FR-PFIZER INC-2016477910

PATIENT
  Age: 72 Year
  Sex: Male
  Weight: 70 kg

DRUGS (1)
  1. SUTENT [Suspect]
     Active Substance: SUNITINIB MALATE
     Indication: METASTATIC RENAL CELL CARCINOMA
     Dosage: 37.5 MG, CYCLIC
     Route: 048
     Dates: start: 20160217

REACTIONS (1)
  - Death [Fatal]

NARRATIVE: CASE EVENT DATE: 20160611
